FAERS Safety Report 9889143 (Version 8)
Quarter: 2016Q1

REPORT INFORMATION
  Report Type: Spontaneous
  Country: DK (occurrence: GB)
  Receive Date: 20140211
  Receipt Date: 20160315
  Transmission Date: 20160526
  Serious: Yes (Life-Threatening, Hospitalization, Other)
  Sender: FDA-Public Use
  Company Number: GB-FRI-1000054114

PATIENT
  Age: 24 Year
  Sex: Female

DRUGS (8)
  1. CODEINE [Suspect]
     Active Substance: CODEINE
     Dosage: OVERDOSE: DOSE NOT SPECIFIED
     Route: 065
  2. TOPAMAX [Suspect]
     Active Substance: TOPIRAMATE
     Dosage: OVERDOSE: DOSE NOT SPECIFIED
     Route: 048
  3. TRAMADOL. [Suspect]
     Active Substance: TRAMADOL
     Dosage: OVERDOSE: DOSE NOT SPECIFIED
     Route: 065
  4. TRAMADOL. [Suspect]
     Active Substance: TRAMADOL
     Indication: PRODUCT USED FOR UNKNOWN INDICATION
     Dosage: DOSE NOT SPECIFIED
     Route: 065
  5. CODEINE [Suspect]
     Active Substance: CODEINE
     Indication: PRODUCT USED FOR UNKNOWN INDICATION
     Dosage: DOSE UNKNOWN
     Route: 065
  6. CITALOPRAM [Suspect]
     Active Substance: CITALOPRAM HYDROBROMIDE
     Indication: PRODUCT USED FOR UNKNOWN INDICATION
     Dosage: 30 MG DAILY
     Route: 048
  7. TOPAMAX [Suspect]
     Active Substance: TOPIRAMATE
     Indication: EPILEPSY
     Dosage: DOSE UNKNOWN
     Route: 048
     Dates: start: 201105
  8. CITALOPRAM [Suspect]
     Active Substance: CITALOPRAM HYDROBROMIDE
     Dosage: OVERDOSE: DOSE NOT SPECIFIED
     Route: 048

REACTIONS (18)
  - Metabolic acidosis [Recovered/Resolved]
  - Acidosis [Recovered/Resolved]
  - Organ failure [Recovered/Resolved]
  - Personality change [Recovered/Resolved]
  - Borderline personality disorder [Recovered/Resolved]
  - Migraine [Unknown]
  - Brain oedema [Recovered/Resolved]
  - Hypersensitivity [Recovered/Resolved]
  - Overdose [Recovered/Resolved]
  - Seizure [Recovered/Resolved]
  - Anger [Recovered/Resolved]
  - Dysarthria [Unknown]
  - Coma [Recovered/Resolved]
  - Weight decreased [Recovered/Resolved]
  - Cerebral haemorrhage [Unknown]
  - Hyperventilation [Unknown]
  - Renal impairment [Recovered/Resolved]
  - Aggression [Recovered/Resolved]

NARRATIVE: CASE EVENT DATE: 2011
